FAERS Safety Report 5477483-1 (Version None)
Quarter: 2007Q4

REPORT INFORMATION
  Report Type: 
  Country: None (occurrence: None)
  Receive Date: 20071004
  Receipt Date: 20070925
  Transmission Date: 20080405
  Serious: No
  Sender: FDA-Public Use
  Company Number: BY-PFIZER INC-2007077062

PATIENT
  Age: 72 Year

DRUGS (1)
  1. ZYVOX [Suspect]
     Indication: BACTERAEMIA
     Route: 042

REACTIONS (1)
  - NO ADVERSE REACTION [None]
